FAERS Safety Report 12485459 (Version 1)
Quarter: 2016Q2

REPORT INFORMATION
  Report Type: Spontaneous
  Country: US (occurrence: US)
  Receive Date: 20160621
  Receipt Date: 20160621
  Transmission Date: 20160815
  Serious: No
  Sender: FDA-Public Use
  Company Number: US-SA-2015SA188470

PATIENT
  Age: 6 Year
  Sex: Male
  Weight: 18.14 kg

DRUGS (9)
  1. CEREZYME [Suspect]
     Active Substance: IMIGLUCERASE
     Indication: LIPIDOSIS
     Dosage: DOSE:66.15 UNIT(S)/KILOGRAM BODYWEIGHT
     Route: 042
     Dates: start: 20150913
  2. ACETAMINOPHEN. [Concomitant]
     Active Substance: ACETAMINOPHEN
     Route: 048
     Dates: start: 20150930
  3. ZYRTEC [Concomitant]
     Active Substance: CETIRIZINE HYDROCHLORIDE
     Dates: start: 20120910
  4. LIDOCAINE/PRILOCAINE [Concomitant]
     Route: 061
     Dates: start: 20151009
  5. NORMAL SALINE [Concomitant]
     Active Substance: SODIUM CHLORIDE
     Route: 042
     Dates: start: 20150930
  6. HEPARIN [Concomitant]
     Active Substance: HEPARIN SODIUM
     Dosage: 100 UNITS/ML
     Dates: start: 20150930
  7. EPIPEN [Concomitant]
     Active Substance: EPINEPHRINE
     Indication: ANAPHYLACTIC REACTION
     Route: 030
     Dates: start: 20150930
  8. DIPHENHYDRAMINE. [Concomitant]
     Active Substance: DIPHENHYDRAMINE
     Dates: start: 20150930
  9. MIRALAX [Concomitant]
     Active Substance: POLYETHYLENE GLYCOL 3350
     Dosage: POWDER
     Dates: start: 20120910

REACTIONS (1)
  - Dyspnoea [Unknown]
